FAERS Safety Report 21962493 (Version 3)
Quarter: 2023Q1

REPORT INFORMATION
  Report Type: Spontaneous
  Country: CN (occurrence: CN)
  Receive Date: 20230207
  Receipt Date: 20230214
  Transmission Date: 20230417
  Serious: Yes (Hospitalization, Other)
  Sender: FDA-Public Use
  Company Number: CN-009507513-2302CHN000166

PATIENT
  Age: 66 Year
  Sex: Male
  Weight: 60 kg

DRUGS (1)
  1. CILASTATIN SODIUM\IMIPENEM [Suspect]
     Active Substance: CILASTATIN SODIUM\IMIPENEM
     Indication: Pneumonia
     Dosage: 1 G, TID
     Route: 041
     Dates: start: 20230103, end: 20230105

REACTIONS (6)
  - Gastrointestinal tube insertion [Unknown]
  - Oxygen saturation decreased [Unknown]
  - Dysphoria [Unknown]
  - Communication disorder [Unknown]
  - Somnolence [Unknown]
  - Restlessness [Unknown]

NARRATIVE: CASE EVENT DATE: 20230101
